FAERS Safety Report 6389483-8 (Version None)
Quarter: 2009Q4

REPORT INFORMATION
  Report Type: 
  Country: None (occurrence: None)
  Receive Date: 20091006
  Receipt Date: 20090911
  Transmission Date: 20100525
  Serious: No
  Sender: FDA-Public Use
  Company Number: JP-ROCHE-651992

PATIENT
  Sex: Female

DRUGS (5)
  1. TAMIFLU [Suspect]
     Indication: INFLUENZA
     Route: 048
     Dates: start: 20090810, end: 20090811
  2. LOXONIN [Concomitant]
     Indication: PAIN
     Route: 048
     Dates: start: 20090805
  3. SELBEX [Concomitant]
     Indication: PAIN
     Route: 048
     Dates: start: 20090805
  4. FLOMOX [Concomitant]
     Route: 048
     Dates: start: 20090810
  5. KIMO TAB [Concomitant]
     Route: 048
     Dates: start: 20090810

REACTIONS (2)
  - DRUG EXPOSURE DURING PREGNANCY [None]
  - RASH [None]
